FAERS Safety Report 10629164 (Version 2)
Quarter: 2014Q4

REPORT INFORMATION
  Report Type: Spontaneous
  Country: US (occurrence: US)
  Receive Date: 20141205
  Receipt Date: 20141205
  Transmission Date: 20150529
  Serious: No
  Sender: FDA-Public Use
  Company Number: US-BRISTOL-MYERS SQUIBB COMPANY-20724068

PATIENT
  Age: 61 Year
  Sex: Female
  Weight: 72.56 kg

DRUGS (3)
  1. BYETTA [Suspect]
     Active Substance: EXENATIDE
     Indication: TYPE 2 DIABETES MELLITUS
     Dosage: PREVIOUS DOSE: 5MCG
     Route: 058
  2. METFORMIN [Concomitant]
     Active Substance: METFORMIN HYDROCHLORIDE
  3. SYNTHROID [Concomitant]
     Active Substance: LEVOTHYROXINE SODIUM

REACTIONS (3)
  - Drug dose omission [Unknown]
  - Tremor [Not Recovered/Not Resolved]
  - Anxiety [Not Recovered/Not Resolved]
